FAERS Safety Report 25425230 (Version 1)
Quarter: 2025Q2

REPORT INFORMATION
  Report Type: Spontaneous
  Country: GB (occurrence: GB)
  Receive Date: 20250611
  Receipt Date: 20250611
  Transmission Date: 20250717
  Serious: Yes (Other)
  Sender: SANDOZ
  Company Number: None

PATIENT
  Age: 77 Year
  Sex: Female
  Weight: 67 kg

DRUGS (2)
  1. EZETIMIBE [Suspect]
     Active Substance: EZETIMIBE
     Indication: Adverse drug reaction
     Route: 065
     Dates: start: 20250424, end: 20250502
  2. SPIRONOLACTONE [Concomitant]
     Active Substance: SPIRONOLACTONE
     Indication: Adverse drug reaction
     Route: 065
     Dates: start: 20160515

REACTIONS (4)
  - Emotional disorder [Recovered/Resolved]
  - Flatulence [Not Recovered/Not Resolved]
  - Diarrhoea [Recovered/Resolved with Sequelae]
  - Fatigue [Recovering/Resolving]

NARRATIVE: CASE EVENT DATE: 20250426
